FAERS Safety Report 7539867-7 (Version None)
Quarter: 2011Q2

REPORT INFORMATION
  Report Type: 
  Country: None (occurrence: None)
  Receive Date: 20110610
  Receipt Date: 20110523
  Transmission Date: 20111010
  Serious: Yes (Hospitalization)
  Sender: FDA-Public Use
  Company Number: US-BAYER-201026126NA

PATIENT
  Age: 26 Year
  Sex: Female
  Weight: 75 kg

DRUGS (14)
  1. DYAZIDE [Concomitant]
     Dates: start: 20090101
  2. ALIMENTARY TRACT AND METABOLISM [Concomitant]
  3. DEPO-PROVERA [Concomitant]
  4. PEPTO BISMOL [Concomitant]
     Indication: PAIN
     Dates: start: 20091201
  5. ZIAC [Concomitant]
     Dosage: 2.5
  6. NOS [Concomitant]
  7. FLAGYL [Concomitant]
     Indication: VAGINITIS BACTERIAL
     Dosage: 500 MG (DAILY DOSE), ,
  8. YAZ [Suspect]
  9. ALKA SELTZER [Concomitant]
     Indication: PAIN
     Dates: start: 20091201
  10. ORTHO TRI-CYCLEN LO [Concomitant]
  11. MICRONOR [Concomitant]
  12. YASMIN [Suspect]
     Indication: CONTRACEPTION
     Route: 048
  13. YASMIN [Suspect]
  14. YAZ [Suspect]
     Indication: CONTRACEPTION
     Route: 048
     Dates: start: 20090601, end: 20091101

REACTIONS (4)
  - CHOLECYSTITIS CHRONIC [None]
  - NAUSEA [None]
  - CHOLELITHIASIS [None]
  - VOMITING [None]
